FAERS Safety Report 9190395 (Version 1)
Quarter: 2013Q1

REPORT INFORMATION
  Report Type: Spontaneous
  Country: US (occurrence: None)
  Receive Date: 20130325
  Receipt Date: 20130325
  Transmission Date: 20140127
  Serious: Yes (Other)
  Sender: FDA-Public Use
  Company Number: None

PATIENT
  Age: 3 Year
  Sex: Female
  Weight: 14.06 kg

DRUGS (2)
  1. LIDOCAINE [Suspect]
     Indication: HYPOAESTHESIA
     Dosage: APPROX. 15G  1  TOP
     Route: 061
     Dates: start: 20130320, end: 20130320
  2. PRILOCAINE [Suspect]

REACTIONS (5)
  - Application site erythema [None]
  - Application site exfoliation [None]
  - Application site vesicles [None]
  - Application site bruise [None]
  - Wrong technique in drug usage process [None]
